FAERS Safety Report 10312368 (Version 1)
Quarter: 2014Q3

REPORT INFORMATION
  Report Type: Spontaneous
  Country: BR (occurrence: BR)
  Receive Date: 20140718
  Receipt Date: 20140718
  Transmission Date: 20150326
  Serious: Yes (Hospitalization)
  Sender: FDA-Public Use
  Company Number: BR-PFIZER INC-2014198294

PATIENT
  Age: 92 Year
  Sex: Female

DRUGS (6)
  1. LYRICA [Suspect]
     Active Substance: PREGABALIN
     Indication: ANTIDEPRESSANT THERAPY
  2. MYTEDON [Concomitant]
     Indication: ANTIDEPRESSANT THERAPY
  3. LYRICA [Suspect]
     Active Substance: PREGABALIN
     Indication: ANALGESIC THERAPY
  4. MYTEDON [Concomitant]
     Indication: PAIN
     Dosage: 3 TABLETS OF UNSPECIFIED DOSAGE DAILY
     Dates: start: 2006
  5. LYRICA [Suspect]
     Active Substance: PREGABALIN
     Indication: PAIN
     Dosage: UNK
     Route: 048
     Dates: start: 2011, end: 201211
  6. MYTEDON [Concomitant]
     Indication: ANALGESIC THERAPY

REACTIONS (3)
  - Pleural effusion [Unknown]
  - Blood pressure increased [Unknown]
  - Respiratory disorder [Unknown]
